FAERS Safety Report 10285879 (Version 2)
Quarter: 2014Q3

REPORT INFORMATION
  Report Type: Spontaneous
  Country: US (occurrence: None)
  Receive Date: 20140703
  Receipt Date: 20140910
  Transmission Date: 20150326
  Serious: Yes (Hospitalization)
  Sender: FDA-Public Use
  Company Number: UNT-2014-002760

PATIENT
  Age: 55 Year
  Sex: Female
  Weight: 95.2 kg

DRUGS (2)
  1. REVATIO (SILDENAFIL CITRATE) [Concomitant]
  2. REMODULIN [Suspect]
     Active Substance: TREPROSTINIL
     Indication: PULMONARY ARTERIAL HYPERTENSION
     Route: 058
     Dates: start: 20140407

REACTIONS (3)
  - Fluid retention [None]
  - Dyspnoea [None]
  - Pulmonary hypertension [None]

NARRATIVE: CASE EVENT DATE: 20140618
